FAERS Safety Report 20960268 (Version 2)
Quarter: 2022Q3

REPORT INFORMATION
  Report Type: Spontaneous
  Country: US (occurrence: US)
  Receive Date: 20220615
  Receipt Date: 20220711
  Transmission Date: 20221027
  Serious: Yes (Hospitalization, Other)
  Sender: FDA-Public Use
  Company Number: US-JNJFOC-20220614173

PATIENT
  Sex: Female

DRUGS (3)
  1. INVEGA TRINZA [Suspect]
     Active Substance: PALIPERIDONE PALMITATE
     Indication: Product used for unknown indication
     Route: 030
     Dates: start: 20220105
  2. INVEGA TRINZA [Suspect]
     Active Substance: PALIPERIDONE PALMITATE
  3. INVEGA TRINZA [Suspect]
     Active Substance: PALIPERIDONE PALMITATE

REACTIONS (2)
  - Adverse event [Unknown]
  - Therapeutic product effect decreased [Unknown]
